FAERS Safety Report 8902874 (Version 1)
Quarter: 2012Q4

REPORT INFORMATION
  Report Type: 
  Country: US (occurrence: US)
  Receive Date: 20121112
  Receipt Date: 20121112
  Transmission Date: 20130627
  Serious: No
  Sender: FDA-Public Use
  Company Number: US-PFIZER INC-2012279142

PATIENT
  Age: 8 Year
  Sex: Female

DRUGS (7)
  1. GENOTROPIN [Suspect]
     Indication: TURNER^S SYNDROME
     Dosage: 1 mg, six times a week
     Dates: start: 2008
  2. GENOTROPIN [Suspect]
     Dosage: 1.2 mg, six times a week
  3. GENOTROPIN [Suspect]
     Dosage: 1.4 mg, six times a week
  4. GENOTROPIN [Suspect]
     Dosage: 1.6 mg, six times a week
  5. GENOTROPIN [Suspect]
     Dosage: 1.8 mg, six times a week
  6. GENOTROPIN [Suspect]
     Dosage: 2 mg, six times a week
  7. GENOTROPIN [Suspect]
     Dosage: 4 mg, six times a week
     Dates: start: 201210

REACTIONS (1)
  - Acne [Recovered/Resolved]
